FAERS Safety Report 24081320 (Version 1)
Quarter: 2024Q3

REPORT INFORMATION
  Report Type: Spontaneous
  Country: JP (occurrence: JP)
  Receive Date: 20240711
  Receipt Date: 20240711
  Transmission Date: 20241017
  Serious: Yes (Death)
  Sender: Jiangsu Simcere Pharmaceutical
  Company Number: JP-SIMCERE OF AMERICA, INC.-2024PRN00265

PATIENT
  Age: 70 Year
  Sex: Male

DRUGS (1)
  1. CELECOXIB [Suspect]
     Active Substance: CELECOXIB
     Indication: Arthralgia
     Dosage: UNK

REACTIONS (1)
  - Vanishing bile duct syndrome [Fatal]
